FAERS Safety Report 9020428 (Version 1)
Quarter: 2013Q1

REPORT INFORMATION
  Report Type: Spontaneous
  Country: US (occurrence: US)
  Receive Date: 20130119
  Receipt Date: 20130119
  Transmission Date: 20140127
  Serious: No
  Sender: FDA-Public Use
  Company Number: US-ALLERGAN-1208495US

PATIENT
  Age: 55 Year
  Sex: Female

DRUGS (4)
  1. BOTOX COSMETIC [Suspect]
     Indication: SKIN WRINKLING
     Dosage: UNK
     Route: 030
     Dates: start: 20120608, end: 20120608
  2. JUVEDERM [Concomitant]
     Indication: PRODUCT USED FOR UNKNOWN INDICATION
     Dosage: UNK
     Dates: start: 20120608, end: 20120608
  3. DENTAL BLOCK [Concomitant]
     Indication: PRODUCT USED FOR UNKNOWN INDICATION
     Dosage: UNK
     Dates: start: 20120608, end: 20120608
  4. MULTIVITAMIN                       /00097801/ [Concomitant]
     Indication: PRODUCT USED FOR UNKNOWN INDICATION

REACTIONS (13)
  - Migraine [Recovered/Resolved]
  - Confusional state [Recovered/Resolved]
  - Dizziness [Recovered/Resolved]
  - Speech disorder [Recovered/Resolved]
  - Vision blurred [Unknown]
  - Nervousness [Recovered/Resolved]
  - Dysphonia [Recovered/Resolved]
  - Eyelid ptosis [Recovering/Resolving]
  - Dysphagia [Recovered/Resolved]
  - Paraesthesia [Recovered/Resolved]
  - Pharyngeal hypoaesthesia [Recovered/Resolved]
  - Mental impairment [Recovered/Resolved]
  - Dysgeusia [Recovered/Resolved]
